FAERS Safety Report 24829955 (Version 1)
Quarter: 2025Q1

REPORT INFORMATION
  Report Type: Spontaneous
  Country: CN (occurrence: CN)
  Receive Date: 20250110
  Receipt Date: 20250110
  Transmission Date: 20250409
  Serious: Yes (Other)
  Sender: ABBVIE
  Company Number: CN-ABBVIE-6075966

PATIENT
  Age: 48 Year
  Sex: Female
  Weight: 83 kg

DRUGS (6)
  1. VENCLEXTA [Suspect]
     Active Substance: VENETOCLAX
     Indication: Chronic myelomonocytic leukaemia
     Dosage: 100 MILLIGRAM; DAY 1
     Route: 048
     Dates: start: 20241204, end: 20241204
  2. VENCLEXTA [Suspect]
     Active Substance: VENETOCLAX
     Indication: Chronic myelomonocytic leukaemia
     Dosage: 200 MILLIGRAM; DAY 2
     Route: 048
     Dates: start: 20241205, end: 20241205
  3. VENCLEXTA [Suspect]
     Active Substance: VENETOCLAX
     Indication: Chronic myelomonocytic leukaemia
     Dosage: 300 MILLIGRAM; DAY 3
     Route: 048
     Dates: start: 20241206, end: 20241206
  4. VENCLEXTA [Suspect]
     Active Substance: VENETOCLAX
     Indication: Chronic myelomonocytic leukaemia
     Dosage: 400 MILLIGRAM; DAY 4
     Route: 048
     Dates: start: 20241207, end: 20241225
  5. AZACITIDINE [Suspect]
     Active Substance: AZACITIDINE
     Indication: Chronic gastritis
     Dosage: 100 MILLIGRAM
     Route: 058
     Dates: start: 20241204, end: 20241208
  6. AZACITIDINE [Suspect]
     Active Substance: AZACITIDINE
     Indication: Chronic gastritis
     Dosage: 100 MILLIGRAM; DAY 1-7
     Route: 058

REACTIONS (5)
  - Pancytopenia [Recovering/Resolving]
  - Platelet count decreased [Recovering/Resolving]
  - Neutrophil count decreased [Recovering/Resolving]
  - Haemoglobin decreased [Recovering/Resolving]
  - Chronic myelomonocytic leukaemia [Unknown]

NARRATIVE: CASE EVENT DATE: 20250104
